FAERS Safety Report 5032568-9 (Version None)
Quarter: 2006Q2

REPORT INFORMATION
  Report Type: 
  Country: None (occurrence: None)
  Receive Date: 20060620
  Receipt Date: 20060605
  Transmission Date: 20061013
  Serious: Yes (Other)
  Sender: FDA-Public Use
  Company Number: 2006-143556-NL

PATIENT
  Age: 32 Year
  Sex: Female
  Weight: 50.8 kg

DRUGS (6)
  1. NUVARING [Suspect]
     Indication: CONTRACEPTION
     Dosage: NI VAGINAL, 3 WEEKS IN, 1 WEEK OUT
     Route: 067
     Dates: start: 20050201, end: 20060501
  2. TOPAMAX [Concomitant]
  3. CYMBALTA [Concomitant]
  4. BUPROPION HCL [Concomitant]
  5. IMITREX [Concomitant]
  6. ATIVAN [Concomitant]

REACTIONS (4)
  - CONDITION AGGRAVATED [None]
  - DYSPEPSIA [None]
  - GASTRIC ULCER HELICOBACTER [None]
  - MIGRAINE [None]
